FAERS Safety Report 6261921-0 (Version None)
Quarter: 2009Q3

REPORT INFORMATION
  Report Type: 
  Country: None (occurrence: None)
  Receive Date: 20090709
  Receipt Date: 20090304
  Transmission Date: 20100115
  Serious: Yes (Death, Hospitalization)
  Sender: FDA-Public Use
  Company Number: B0582672A

PATIENT
  Age: 70 Year
  Sex: Male
  Weight: 72 kg

DRUGS (7)
  1. OMACOR [Suspect]
     Indication: PROPHYLAXIS
     Dosage: 1000MG PER DAY
     Route: 048
     Dates: start: 20040302, end: 20040101
  2. BETA BLOCKER [Concomitant]
     Dates: end: 20040101
  3. ASPIRIN [Concomitant]
     Dates: end: 20040101
  4. CLOPIDOGREL [Concomitant]
     Dates: end: 20040101
  5. ACE INHIBITOR [Concomitant]
     Dates: end: 20040101
  6. DIURETICS [Concomitant]
     Dates: end: 20040101
  7. STATINS [Concomitant]

REACTIONS (1)
  - CARDIOGENIC SHOCK [None]
